FAERS Safety Report 16644183 (Version 1)
Quarter: 2019Q3

REPORT INFORMATION
  Report Type: Other
  Country: US (occurrence: US)
  Receive Date: 20190729
  Receipt Date: 20190729
  Transmission Date: 20191004
  Serious: Yes (Hospitalization)
  Sender: FDA-Public Use
  Company Number: US-BIOVITRUM-2019US2148

PATIENT
  Sex: Female

DRUGS (1)
  1. KINERET [Suspect]
     Active Substance: ANAKINRA
     Indication: POLYGLANDULAR DISORDER
     Route: 058
     Dates: start: 20190709

REACTIONS (2)
  - Off label use [Not Recovered/Not Resolved]
  - Pericardial effusion [Unknown]
